FAERS Safety Report 13387000 (Version 2)
Quarter: 2017Q1

REPORT INFORMATION
  Report Type: Spontaneous
  Country: JP (occurrence: JP)
  Receive Date: 20170330
  Receipt Date: 20170330
  Transmission Date: 20170429
  Serious: Yes (Death, Life-Threatening, Other)
  Sender: FDA-Public Use
  Company Number: JP-LUPIN PHARMACEUTICALS INC.-2017-01464

PATIENT
  Age: 75 Year
  Sex: Female

DRUGS (5)
  1. PYRAZINAMIDE. [Suspect]
     Active Substance: PYRAZINAMIDE
     Indication: DISSEMINATED TUBERCULOSIS
     Dosage: 1.2 G, UNK
     Route: 065
  2. ETHAMBUTOL [Suspect]
     Active Substance: ETHAMBUTOL HYDROCHLORIDE
     Indication: DISSEMINATED TUBERCULOSIS
     Dosage: 750 MG, UNK
     Route: 065
  3. ISONIAZID. [Suspect]
     Active Substance: ISONIAZID
     Indication: DISSEMINATED TUBERCULOSIS
     Dosage: 200 MG, UNK
     Route: 065
  4. METHYLPREDNISOLONE. [Concomitant]
     Active Substance: METHYLPREDNISOLONE
     Indication: DISSEMINATED TUBERCULOSIS
     Dosage: 500 MG, UNK
     Route: 065
  5. RIFAMPIN. [Suspect]
     Active Substance: RIFAMPIN
     Indication: DISSEMINATED TUBERCULOSIS
     Dosage: 450 MG, UNK
     Route: 065

REACTIONS (5)
  - Disseminated intravascular coagulation [Unknown]
  - Acute respiratory distress syndrome [Unknown]
  - Immune reconstitution inflammatory syndrome [Fatal]
  - Shock [Unknown]
  - Hepatotoxicity [Recovering/Resolving]
